FAERS Safety Report 14853409 (Version 1)
Quarter: 2018Q2

REPORT INFORMATION
  Report Type: Spontaneous
  Country: US (occurrence: US)
  Receive Date: 20180507
  Receipt Date: 20180507
  Transmission Date: 20180711
  Serious: No
  Sender: FDA-Public Use
  Company Number: US-UNITED THERAPEUTICS-UNT-2018-002695

PATIENT
  Age: 75 Year
  Sex: Female
  Weight: 63.39 kg

DRUGS (4)
  1. TYVASO [Suspect]
     Active Substance: TREPROSTINIL
     Indication: PULMONARY ARTERIAL HYPERTENSION
     Dosage: 18-54 MICROGRAMS, QID
     Dates: start: 20180220, end: 20180312
  2. OPSUMIT [Concomitant]
     Active Substance: MACITENTAN
     Indication: PRODUCT USED FOR UNKNOWN INDICATION
     Route: 065
  3. UPTRAVI [Concomitant]
     Active Substance: SELEXIPAG
     Indication: PRODUCT USED FOR UNKNOWN INDICATION
     Route: 065
  4. TYVASO [Suspect]
     Active Substance: TREPROSTINIL
     Indication: PULMONARY HYPERTENSION

REACTIONS (12)
  - Headache [Unknown]
  - Oxygen saturation decreased [Unknown]
  - Dysphonia [Unknown]
  - Diarrhoea [Unknown]
  - Abdominal discomfort [Unknown]
  - Abdominal distension [Unknown]
  - Unevaluable event [Unknown]
  - Dizziness [Unknown]
  - Abdominal pain upper [Unknown]
  - Pyrexia [Unknown]
  - Throat irritation [Unknown]
  - Weight increased [Unknown]

NARRATIVE: CASE EVENT DATE: 201802
